FAERS Safety Report 20326346 (Version 1)
Quarter: 2022Q1

REPORT INFORMATION
  Report Type: Spontaneous
  Country: US (occurrence: US)
  Receive Date: 20220112
  Receipt Date: 20220112
  Transmission Date: 20220423
  Serious: Yes (Hospitalization)
  Sender: FDA-Public Use
  Company Number: US-LUPIN PHARMACEUTICALS INC.-2021-26827

PATIENT
  Age: 3 Year
  Sex: Male

DRUGS (27)
  1. CLONIDINE [Suspect]
     Active Substance: CLONIDINE
     Indication: Dystonia
     Dosage: UNK
     Route: 065
  2. CLONIDINE [Suspect]
     Active Substance: CLONIDINE
     Indication: Opisthotonus
  3. CLONIDINE [Suspect]
     Active Substance: CLONIDINE
     Indication: Posturing
  4. MORPHINE [Suspect]
     Active Substance: MORPHINE
     Indication: Dystonia
     Dosage: UNK
     Route: 065
  5. MORPHINE [Suspect]
     Active Substance: MORPHINE
     Indication: Opisthotonus
  6. MORPHINE [Suspect]
     Active Substance: MORPHINE
     Indication: Posturing
  7. PROPRANOLOL [Suspect]
     Active Substance: PROPRANOLOL HYDROCHLORIDE
     Indication: Opisthotonus
     Dosage: UNK
     Route: 065
  8. PROPRANOLOL [Suspect]
     Active Substance: PROPRANOLOL HYDROCHLORIDE
     Indication: Posturing
  9. PROPRANOLOL [Suspect]
     Active Substance: PROPRANOLOL HYDROCHLORIDE
     Indication: Dystonia
  10. PHENOBARBITAL [Suspect]
     Active Substance: PHENOBARBITAL
     Indication: Dystonia
     Dosage: UNK
     Route: 065
  11. PHENOBARBITAL [Suspect]
     Active Substance: PHENOBARBITAL
     Indication: Opisthotonus
  12. PHENOBARBITAL [Suspect]
     Active Substance: PHENOBARBITAL
     Indication: Posturing
  13. CLONAZEPAM [Suspect]
     Active Substance: CLONAZEPAM
     Indication: Dystonia
     Dosage: UNK
     Route: 065
  14. CLONAZEPAM [Suspect]
     Active Substance: CLONAZEPAM
     Indication: Opisthotonus
  15. CLONAZEPAM [Suspect]
     Active Substance: CLONAZEPAM
     Indication: Posturing
  16. BACLOFEN [Suspect]
     Active Substance: BACLOFEN
     Indication: Dystonia
     Dosage: UNK
     Route: 065
  17. BACLOFEN [Suspect]
     Active Substance: BACLOFEN
     Indication: Opisthotonus
     Dosage: 50 MICROGRAM
     Route: 065
  18. BACLOFEN [Suspect]
     Active Substance: BACLOFEN
     Indication: Posturing
  19. DANTROLENE [Suspect]
     Active Substance: DANTROLENE
     Indication: Dystonia
     Dosage: UNK
     Route: 065
  20. DANTROLENE [Suspect]
     Active Substance: DANTROLENE
     Indication: Opisthotonus
  21. DANTROLENE [Suspect]
     Active Substance: DANTROLENE
     Indication: Posturing
  22. BOTULINUM TOXIN TYPE A [Suspect]
     Active Substance: BOTULINUM TOXIN TYPE A
     Indication: Dystonia
     Dosage: UNK
     Route: 065
  23. BOTULINUM TOXIN TYPE A [Suspect]
     Active Substance: BOTULINUM TOXIN TYPE A
     Indication: Opisthotonus
  24. BOTULINUM TOXIN TYPE A [Suspect]
     Active Substance: BOTULINUM TOXIN TYPE A
     Indication: Posturing
  25. PHENOL [Suspect]
     Active Substance: PHENOL
     Indication: Dystonia
     Dosage: UNK
     Route: 065
  26. PHENOL [Suspect]
     Active Substance: PHENOL
     Indication: Opisthotonus
  27. PHENOL [Suspect]
     Active Substance: PHENOL
     Indication: Posturing

REACTIONS (2)
  - Drug ineffective for unapproved indication [Unknown]
  - Off label use [Unknown]
